FAERS Safety Report 9460506 (Version 4)
Quarter: 2013Q4

REPORT INFORMATION
  Report Type: Report from Study
  Country: DE (occurrence: DE)
  Receive Date: 20130815
  Receipt Date: 20131128
  Transmission Date: 20140711
  Serious: Yes (Death, Hospitalization)
  Sender: FDA-Public Use
  Company Number: DE-CELGENEUS-062-50794-13063209

PATIENT
  Age: 62 Year
  Sex: Male
  Weight: 71 kg

DRUGS (5)
  1. VIDAZA [Suspect]
     Indication: MYELODYSPLASTIC SYNDROME
     Dosage: 148.5 MILLIGRAM
     Route: 058
     Dates: start: 20130614, end: 20130617
  2. VIDAZA [Suspect]
     Indication: ACUTE MYELOID LEUKAEMIA
     Dosage: 148.5 MILLIGRAM
     Route: 058
     Dates: start: 20130812, end: 20130818
  3. HEPARIN [Concomitant]
     Indication: THROMBOSIS PROPHYLAXIS
     Route: 065
     Dates: start: 20130827
  4. HEPARIN [Concomitant]
     Route: 065
     Dates: start: 20130829, end: 20130908
  5. PLATELETS [Concomitant]
     Indication: PRODUCT USED FOR UNKNOWN INDICATION
     Route: 065
     Dates: start: 20130825, end: 20130907

REACTIONS (7)
  - Graft versus host disease [Unknown]
  - Graft versus host disease [Unknown]
  - Sepsis [Fatal]
  - Pneumonia [Fatal]
  - Pancytopenia [Fatal]
  - Respiratory failure [Fatal]
  - Sepsis [Recovered/Resolved]
